FAERS Safety Report 9096148 (Version 1)
Quarter: 2013Q1

REPORT INFORMATION
  Report Type: Report from Study
  Country: CA (occurrence: CA)
  Receive Date: 20130207
  Receipt Date: 20130207
  Transmission Date: 20140127
  Serious: Yes (Other)
  Sender: FDA-Public Use
  Company Number: CA-ROCHE-1188621

PATIENT
  Age: 50 Year
  Sex: 0

DRUGS (4)
  1. AVASTIN [Suspect]
     Indication: COLORECTAL CANCER
     Route: 065
     Dates: start: 201201, end: 201204
  2. FOLINIC ACID [Suspect]
     Indication: COLORECTAL CANCER
     Route: 065
     Dates: start: 201201, end: 201204
  3. FLUOROURACIL [Suspect]
     Indication: COLORECTAL CANCER
     Route: 065
     Dates: start: 201201, end: 201204
  4. OXALIPLATIN [Suspect]
     Indication: COLORECTAL CANCER
     Route: 065
     Dates: start: 201201, end: 201204

REACTIONS (1)
  - Disease progression [Unknown]
